FAERS Safety Report 15059746 (Version 7)
Quarter: 2021Q4

REPORT INFORMATION
  Report Type: Spontaneous
  Country: US (occurrence: US)
  Receive Date: 20180625
  Receipt Date: 20211102
  Transmission Date: 20220304
  Serious: No
  Sender: FDA-Public Use
  Company Number: US-SA-2018SA165063

PATIENT
  Age: 66 Year
  Sex: Male

DRUGS (3)
  1. DUPIXENT [Suspect]
     Active Substance: DUPILUMAB
     Indication: Dermatitis atopic
     Dosage: 300 MG, QOW
     Route: 058
     Dates: start: 201802, end: 201806
  2. DUPIXENT [Suspect]
     Active Substance: DUPILUMAB
     Dosage: 300 MG, QOW
     Route: 058
  3. CLOBETASOL [Concomitant]
     Active Substance: CLOBETASOL
     Indication: Acne

REACTIONS (6)
  - Ocular hyperaemia [Unknown]
  - Blood pressure increased [Unknown]
  - Pruritus [Unknown]
  - Acne [Unknown]
  - Skin haemorrhage [Unknown]
  - Dry skin [Unknown]

NARRATIVE: CASE EVENT DATE: 20180301
